FAERS Safety Report 16474984 (Version 1)
Quarter: 2019Q2

REPORT INFORMATION
  Report Type: Spontaneous
  Country: CN (occurrence: CN)
  Receive Date: 20190625
  Receipt Date: 20190625
  Transmission Date: 20190711
  Serious: Yes (Death, Other)
  Sender: FDA-Public Use
  Company Number: CN-BAUSCH-BL-2019-017392

PATIENT
  Age: 75 Year
  Sex: Male

DRUGS (21)
  1. 5-FLUOROURACIL [Suspect]
     Active Substance: FLUOROURACIL
     Dosage: 9-CYCLES OF FOLFIRI
     Route: 065
     Dates: start: 20160325, end: 2016
  2. FOLINIC ACID [Suspect]
     Active Substance: LEUCOVORIN
     Dosage: 2-CYCLES OF MFOLFOX6
     Route: 065
  3. FOLINIC ACID [Suspect]
     Active Substance: LEUCOVORIN
     Dosage: 9-CYCLES OF FOLFIRI
     Route: 065
     Dates: start: 20160325, end: 2016
  4. OXALIPLATIN. [Suspect]
     Active Substance: OXALIPLATIN
     Indication: METASTASES TO LIVER
     Dosage: 3-CYCLES OF MFOLFOX6
     Route: 065
     Dates: start: 20140814, end: 2014
  5. OXALIPLATIN. [Suspect]
     Active Substance: OXALIPLATIN
     Dosage: 7-CYCLES OF MFOLFOX6
     Route: 065
     Dates: start: 20150706, end: 2015
  6. HELIUM. [Concomitant]
     Active Substance: HELIUM
     Dosage: CRYOABLATION ALONG WITH ARGON
     Route: 065
     Dates: start: 20151028
  7. HELIUM. [Concomitant]
     Active Substance: HELIUM
     Dosage: CRYOABLATION ALONG WITH ARGON
     Route: 065
     Dates: start: 20151104
  8. FOLINIC ACID [Suspect]
     Active Substance: LEUCOVORIN
     Indication: METASTASES TO LIVER
     Dosage: 3-CYCLES OF MFOLFOX6
     Route: 065
     Dates: start: 20140814, end: 2014
  9. OXALIPLATIN. [Suspect]
     Active Substance: OXALIPLATIN
     Indication: GASTRIC CANCER
     Dosage: 5-CYCLES OF MFOLFOX6
     Route: 065
     Dates: start: 20140527, end: 2014
  10. IRINOTECAN [Suspect]
     Active Substance: IRINOTECAN
     Indication: GASTRIC CANCER
     Dosage: 9-CYCLES OF FOLFIRI
     Route: 065
     Dates: start: 20160325, end: 2016
  11. 5-FLUOROURACIL [Suspect]
     Active Substance: FLUOROURACIL
     Indication: METASTASES TO LIVER
     Dosage: 3-CYCLES OF MFOLFOX6
     Route: 065
     Dates: start: 20140814, end: 2014
  12. 5-FLUOROURACIL [Suspect]
     Active Substance: FLUOROURACIL
     Dosage: 7-CYCLES OF MFOLFOX6
     Route: 065
     Dates: start: 20150706, end: 2015
  13. 5-FLUOROURACIL [Suspect]
     Active Substance: FLUOROURACIL
     Dosage: 2-CYCLES OF MFOLFOX6
     Route: 065
  14. FOLINIC ACID [Suspect]
     Active Substance: LEUCOVORIN
     Indication: GASTRIC CANCER
     Dosage: 5-CYCLES OF MFOLFOX6
     Route: 065
     Dates: start: 20140527, end: 2014
  15. FOLINIC ACID [Suspect]
     Active Substance: LEUCOVORIN
     Dosage: 7-CYCLES OF MFOLFOX6
     Route: 065
     Dates: start: 20150706, end: 2015
  16. 5-FLUOROURACIL [Suspect]
     Active Substance: FLUOROURACIL
     Indication: GASTRIC CANCER
     Dosage: 5-CYCLES OF MFOLFOX6
     Route: 065
     Dates: start: 20140527, end: 2014
  17. HELIUM. [Concomitant]
     Active Substance: HELIUM
     Indication: METASTASES TO LIVER
     Dosage: RECEIVED DURING CRYOABLATION ALONG WITH ARGON
     Route: 065
     Dates: start: 20140808, end: 2014
  18. PACLITAXEL. [Concomitant]
     Active Substance: PACLITAXEL
     Indication: GASTRIC CANCER
     Dosage: PLUS SECOND-LINE CHEMOTHERAPY; 3 CYCLES
     Route: 065
     Dates: start: 20150421, end: 2015
  19. PACLITAXEL. [Concomitant]
     Active Substance: PACLITAXEL
     Indication: METASTASES TO LIVER
  20. OXALIPLATIN. [Suspect]
     Active Substance: OXALIPLATIN
     Dosage: 2-CYCLES OF MFOLFOX6
     Route: 065
  21. IRINOTECAN [Suspect]
     Active Substance: IRINOTECAN
     Indication: METASTASES TO LIVER

REACTIONS (1)
  - Neutropenia [Unknown]

NARRATIVE: CASE EVENT DATE: 2014
